FAERS Safety Report 22307397 (Version 3)
Quarter: 2023Q2

REPORT INFORMATION
  Report Type: Report from Study
  Country: TR (occurrence: TR)
  Receive Date: 20230511
  Receipt Date: 20230601
  Transmission Date: 20230722
  Serious: Yes (Hospitalization, Other)
  Sender: FDA-Public Use
  Company Number: TR-JNJFOC-20230510692

PATIENT
  Age: 78 Year
  Sex: Male
  Weight: 68.2 kg

DRUGS (7)
  1. ABIRATERONE ACETATE [Suspect]
     Active Substance: ABIRATERONE ACETATE
     Indication: Prostate cancer
     Route: 048
     Dates: start: 20220824, end: 20230425
  2. ABEMACICLIB [Suspect]
     Active Substance: ABEMACICLIB
     Indication: Prostate cancer
     Route: 065
     Dates: start: 20220824, end: 20230425
  3. PREDNISOLONE [Suspect]
     Active Substance: PREDNISOLONE
     Indication: Prostate cancer
     Route: 048
  4. MAJEZIK DUO [Concomitant]
     Dates: start: 202206
  5. FENTANYL [Concomitant]
     Active Substance: FENTANYL
     Indication: Prostate cancer
     Dates: start: 202206
  6. PINGEL [CLOPIDOGREL] [Concomitant]
     Indication: Aortic aneurysm
     Dates: start: 2019
  7. PLAVIX [Concomitant]
     Active Substance: CLOPIDOGREL BISULFATE
     Dates: start: 2019

REACTIONS (7)
  - Hypokalaemia [Recovered/Resolved]
  - Asthenia [Recovered/Resolved]
  - Nausea [Recovered/Resolved]
  - Vomiting [Recovered/Resolved]
  - Hyperkalaemia [Recovered/Resolved]
  - Decreased appetite [Recovered/Resolved]
  - Dehydration [Unknown]

NARRATIVE: CASE EVENT DATE: 20220919
